FAERS Safety Report 8193826-2 (Version None)
Quarter: 2012Q1

REPORT INFORMATION
  Report Type: 
  Country: None (occurrence: None)
  Receive Date: 20120308
  Receipt Date: 20120228
  Transmission Date: 20120608
  Serious: Yes (Other)
  Sender: FDA-Public Use
  Company Number: US-SHIONOGI, INC-2012000099

PATIENT
  Sex: Male

DRUGS (2)
  1. FOCALIN XR [Concomitant]
     Indication: ATTENTION DEFICIT/HYPERACTIVITY DISORDER
     Dosage: UNK
  2. KAPVAY [Suspect]
     Dosage: UNK

REACTIONS (1)
  - ATRIOVENTRICULAR BLOCK FIRST DEGREE [None]
